FAERS Safety Report 5945223-5 (Version None)
Quarter: 2008Q4

REPORT INFORMATION
  Report Type: 
  Country: None (occurrence: None)
  Receive Date: 20081107
  Receipt Date: 20081029
  Transmission Date: 20090506
  Serious: Yes (Hospitalization)
  Sender: FDA-Public Use
  Company Number: US-PURDUE-USA_2008_0035691

PATIENT
  Age: 56 Year
  Sex: Male

DRUGS (2)
  1. OXYCONTIN [Suspect]
     Indication: PAIN
     Dosage: 20 MG, TID
     Dates: start: 20070101, end: 20081001
  2. CELEBREX [Concomitant]
     Indication: PAIN
     Dosage: 200 MG, PRN

REACTIONS (4)
  - DYSGEUSIA [None]
  - INTENTIONAL DRUG MISUSE [None]
  - PAROSMIA [None]
  - RENAL NEOPLASM [None]
